FAERS Safety Report 4984821-2 (Version None)
Quarter: 2006Q2

REPORT INFORMATION
  Report Type: 
  Country: None (occurrence: None)
  Receive Date: 20060427
  Receipt Date: 20050104
  Transmission Date: 20061013
  Serious: Yes (Hospitalization)
  Sender: FDA-Public Use
  Company Number: CA-BRISTOL-MYERS SQUIBB COMPANY-12814828

PATIENT
  Age: 62 Year
  Sex: Female

DRUGS (6)
  1. MURAGLITAZAR [Suspect]
     Indication: DIABETES MELLITUS NON-INSULIN-DEPENDENT
     Route: 048
     Dates: start: 20041209
  2. METFORMIN HYDROCHLORIDE [Suspect]
     Indication: DIABETES MELLITUS NON-INSULIN-DEPENDENT
     Route: 048
     Dates: start: 19980101, end: 20050103
  3. COZAAR [Concomitant]
     Dates: start: 19940101
  4. INDAPAMIDE [Concomitant]
     Dates: start: 19940101
  5. MODUCARE [Concomitant]
     Dosage: DOSAGE FORM = TABLET
     Dates: start: 19990101
  6. CALCIUM+MAGNESIUM+VITAMIN D [Concomitant]
     Dosage: DOSAGE FORM = TABLESPOON
     Dates: start: 20020101

REACTIONS (5)
  - CORONARY ARTERY DISEASE [None]
  - MITRAL VALVE PROLAPSE [None]
  - NON-CARDIAC CHEST PAIN [None]
  - QRS AXIS ABNORMAL [None]
  - VENTRICULAR TACHYCARDIA [None]
